FAERS Safety Report 7109194-0 (Version None)
Quarter: 2010Q4

REPORT INFORMATION
  Report Type: 
  Country: None (occurrence: None)
  Receive Date: 20101117
  Receipt Date: 20101104
  Transmission Date: 20110411
  Serious: Yes (Other)
  Sender: FDA-Public Use
  Company Number: US-ELI_LILLY_AND_COMPANY-US201011001995

PATIENT
  Age: 22 Year
  Sex: Male

DRUGS (8)
  1. STRATTERA [Suspect]
     Indication: ATTENTION DEFICIT/HYPERACTIVITY DISORDER
     Dosage: 25 MG, UNK
  2. STRATTERA [Suspect]
     Dosage: 40 MG, UNK
  3. STRATTERA [Suspect]
     Dosage: 60 MG, UNK
  4. STRATTERA [Suspect]
     Dosage: 25 MG, UNK
  5. STRATTERA [Suspect]
     Dosage: 40 MG, UNK
  6. CYMBALTA [Suspect]
     Indication: DEPRESSION
     Dosage: 20 MG, UNK
  7. CYMBALTA [Suspect]
     Dosage: 30 MG, UNK
  8. GEODON [Concomitant]

REACTIONS (3)
  - DRUG INEFFECTIVE [None]
  - HEADACHE [None]
  - SUICIDAL BEHAVIOUR [None]
